FAERS Safety Report 17078123 (Version 2)
Quarter: 2019Q4

REPORT INFORMATION
  Report Type: Spontaneous
  Country: MX (occurrence: MX)
  Receive Date: 20191126
  Receipt Date: 20191205
  Transmission Date: 20200122
  Serious: No
  Sender: FDA-Public Use
  Company Number: MX-009507513-1911MEX008819

PATIENT
  Age: 5 Year
  Sex: Female

DRUGS (3)
  1. BETAMETHASONE DIPROPIONATE (+) CLOTRIMAZOLE (+) GENTAMICIN SULFATE [Suspect]
     Active Substance: BETAMETHASONE DIPROPIONATE\CLOTRIMAZOLE\GENTAMICIN SULFATE
     Indication: DERMATITIS ATOPIC
     Dosage: UNK, Q12H (ALSO REPORTED AS TWICE DAILY FOR ONE MONTH)
  2. BETAMETHASONE. [Suspect]
     Active Substance: BETAMETHASONE
     Indication: DERMATITIS ATOPIC
     Route: 061
  3. HYDROCORTISONE. [Suspect]
     Active Substance: HYDROCORTISONE
     Indication: DERMATITIS ATOPIC
     Route: 061

REACTIONS (1)
  - Tinea infection [Recovered/Resolved]
